FAERS Safety Report 9423953 (Version 2)
Quarter: 2013Q4

REPORT INFORMATION
  Report Type: Spontaneous
  Country: FR (occurrence: FR)
  Receive Date: 20130729
  Receipt Date: 20131108
  Transmission Date: 20140711
  Serious: Yes (Disabling)
  Sender: FDA-Public Use
  Company Number: FR-ROCHE-1254193

PATIENT
  Age: 75 Year
  Sex: Male

DRUGS (10)
  1. LUCENTIS [Suspect]
     Indication: AGE-RELATED MACULAR DEGENERATION
     Dosage: 10 MG/ML
     Route: 050
     Dates: start: 20120615
  2. LUCENTIS [Suspect]
     Dosage: 10/MG/ML
     Route: 050
     Dates: start: 20120717
  3. LUCENTIS [Suspect]
     Dosage: 10 MG/ML
     Route: 050
     Dates: start: 20120903
  4. LUCENTIS [Suspect]
     Dosage: 10 MG/ML
     Route: 050
     Dates: start: 20121009
  5. LUCENTIS [Suspect]
     Dosage: 10 MG/ML
     Route: 050
     Dates: start: 20121203
  6. LUCENTIS [Suspect]
     Dosage: 10 MG/ML
     Route: 050
     Dates: start: 20130128
  7. LUCENTIS [Suspect]
     Dosage: 10 MG/ML
     Route: 050
     Dates: start: 20130408
  8. LUCENTIS [Suspect]
     Dosage: 10 MG/ML
     Route: 050
     Dates: start: 20130617
  9. LUCENTIS [Suspect]
     Route: 050
     Dates: start: 20130826
  10. APROVEL [Concomitant]

REACTIONS (1)
  - Rheumatoid arthritis [Not Recovered/Not Resolved]
